FAERS Safety Report 8601371-2 (Version None)
Quarter: 2012Q3

REPORT INFORMATION
  Report Type: 
  Country: None (occurrence: None)
  Receive Date: 20120817
  Receipt Date: 20120810
  Transmission Date: 20120928
  Serious: Yes (Death, Hospitalization)
  Sender: FDA-Public Use
  Company Number: US-BRISTOL-MYERS SQUIBB COMPANY-15394703

PATIENT
  Age: 64 Year
  Sex: Female
  Weight: 122 kg

DRUGS (17)
  1. ZOFRAN [Concomitant]
     Dosage: ZOFRAN 8MG TABS EVERY 8 HOURS
     Route: 048
     Dates: start: 20100501
  2. OMEPRAZOLE [Concomitant]
     Dosage: EQL OMEPRAZOLE 20 MG TBEC
     Route: 048
     Dates: start: 20041101
  3. POTASSIUM CHLORIDE [Concomitant]
     Dosage: POTASSIUM CHLORIDE 20MEQ CAPS 3
     Route: 048
     Dates: start: 20101108
  4. COUMADIN [Concomitant]
     Dosage: COUMADIN 5MG TABS
     Route: 048
     Dates: start: 20100930
  5. BENADRYL [Concomitant]
     Indication: PRURITUS
     Dosage: 4 TIMES A DAY
  6. IPILIMUMAB [Suspect]
     Indication: MALIGNANT MELANOMA
     Dosage: .NO OF COURSES=1
     Route: 042
     Dates: start: 20101109, end: 20101109
  7. SYNTHROID [Concomitant]
     Dosage: SYNTHROID 100 MCG TABS,125 MCG TABS FIR A TOTAL OF 225 MCG
     Route: 048
     Dates: start: 20081101
  8. MULTI-VITAMINS [Concomitant]
     Dosage: CENTRUMSILVER TABS
     Route: 048
     Dates: start: 20100701
  9. PROMETHAZINE [Concomitant]
     Dosage: PROMETHAZINE HCL 25MG TABS EVERY 8 HRS
     Route: 048
     Dates: start: 20100501
  10. PERCOCET [Concomitant]
     Indication: PAIN
     Dosage: PERCOCET 5/325MG TABS
     Route: 048
     Dates: start: 20100301
  11. CLONIDINE [Concomitant]
  12. ANTIHISTAMINE NOS [Concomitant]
  13. METOPROLOL TARTRATE [Concomitant]
     Dosage: METOPROLOL TARTRATE 25 MG TABS
     Route: 048
     Dates: start: 20101006
  14. DIOVAN HCT [Concomitant]
     Dosage: DIOVAN HCT 160-25 MG TABS
     Dates: start: 20041101
  15. XANAX [Concomitant]
     Dosage: ALPRAZOLAM 0.25MG TABS DAILY
     Route: 048
     Dates: start: 20100915
  16. LASIX [Concomitant]
     Dosage: FUROSEMIDE 20MG TABS
     Route: 048
     Dates: start: 20100922
  17. VITAMIN D [Concomitant]
     Dosage: VITAMIN D3 TABS
     Route: 048
     Dates: start: 20091101

REACTIONS (3)
  - OEDEMA PERIPHERAL [None]
  - DEATH [None]
  - DYSPNOEA [None]
